FAERS Safety Report 19079240 (Version 1)
Quarter: 2021Q1

REPORT INFORMATION
  Report Type: Spontaneous
  Country: IN (occurrence: IN)
  Receive Date: 20210331
  Receipt Date: 20210331
  Transmission Date: 20210420
  Serious: Yes (Death)
  Sender: FDA-Public Use
  Company Number: IN-PFIZER INC-2019514231

PATIENT
  Age: 66 Year
  Sex: Female

DRUGS (3)
  1. PALBACE [Suspect]
     Active Substance: PALBOCICLIB
     Dosage: 125 MG, CYCLIC (1X/DAY FOR 2 WEEKS)
     Dates: end: 20200912
  2. PALBACE [Suspect]
     Active Substance: PALBOCICLIB
     Indication: BREAST CANCER METASTATIC
     Dosage: 125 MG, 1X/DAY
     Route: 048
     Dates: start: 20191116
  3. FEMARA [Concomitant]
     Active Substance: LETROZOLE
     Dosage: UNK, CYCLIC (1OD X 4WEEKS)

REACTIONS (3)
  - Asthenia [Unknown]
  - Insomnia [Unknown]
  - Death [Fatal]

NARRATIVE: CASE EVENT DATE: 20200912
